FAERS Safety Report 9148408 (Version 2)
Quarter: 2013Q2

REPORT INFORMATION
  Report Type: Spontaneous
  Country: US (occurrence: US)
  Receive Date: 20130308
  Receipt Date: 20130516
  Transmission Date: 20140414
  Serious: Yes (Other)
  Sender: FDA-Public Use
  Company Number: PHEH2013US005421

PATIENT
  Sex: Female

DRUGS (8)
  1. DIOVAN [Suspect]
     Dosage: 320 MG, QD
     Route: 048
  2. ATENOLOL [Concomitant]
     Dosage: 100 MG, UNK
  3. TRAMADOL [Concomitant]
  4. ASPIRIN [Concomitant]
     Dosage: 81 MG, UNK
  5. CENTRUM [Concomitant]
  6. AMLODIPINE [Concomitant]
     Dosage: 5 MG, UNK
  7. LIPITOR [Concomitant]
     Dosage: 20 MG, UNK
  8. CALCIUM [Concomitant]

REACTIONS (2)
  - Myocardial infarction [Unknown]
  - Hip fracture [Unknown]
